FAERS Safety Report 5934431-5 (Version None)
Quarter: 2008Q4

REPORT INFORMATION
  Report Type: 
  Country: None (occurrence: None)
  Receive Date: 20081029
  Receipt Date: 20081019
  Transmission Date: 20090506
  Serious: Yes (Death, Hospitalization, Other)
  Sender: FDA-Public Use
  Company Number: PH-PFIZER INC-2008088309

PATIENT
  Age: 32 Year
  Sex: Female

DRUGS (5)
  1. CELEBREX [Suspect]
     Indication: ARTHRALGIA
  2. CELECOXIB [Suspect]
  3. CIPROFLOXACIN [Concomitant]
  4. GALENIC /IBUPROFEN/PARACETAMOL/ [Concomitant]
  5. VOLTAREN [Concomitant]
     Route: 061

REACTIONS (3)
  - HYPOTENSION [None]
  - MULTI-ORGAN FAILURE [None]
  - STEVENS-JOHNSON SYNDROME [None]
